FAERS Safety Report 18307931 (Version 1)
Quarter: 2020Q3

REPORT INFORMATION
  Report Type: Spontaneous
  Country: US (occurrence: US)
  Receive Date: 20200924
  Receipt Date: 20200924
  Transmission Date: 20201103
  Serious: Yes (Other)
  Sender: FDA-Public Use
  Company Number: US-KASDIRECT-2020-US-018033

PATIENT
  Age: 5 Year
  Sex: Male

DRUGS (2)
  1. SPF 50 PLUS SUNSCREEN [Suspect]
     Active Substance: OCTISALATE\TITANIUM DIOXIDE\ZINC OXIDE
     Indication: THERAPEUTIC SKIN CARE TOPICAL
     Route: 061
  2. BABYGANICS SHAMPOO + BODY WASH (COSMETICS) [Suspect]
     Active Substance: COSMETICS
     Route: 061

REACTIONS (4)
  - Urticaria [Unknown]
  - Respiratory distress [Unknown]
  - Swelling [Unknown]
  - Pruritus [Unknown]

NARRATIVE: CASE EVENT DATE: 20200828
